FAERS Safety Report 17784268 (Version 1)
Quarter: 2020Q2

REPORT INFORMATION
  Report Type: Report from Study
  Country: FR (occurrence: FR)
  Receive Date: 20200513
  Receipt Date: 20200513
  Transmission Date: 20200714
  Serious: Yes (Death)
  Sender: FDA-Public Use
  Company Number: FR-JNJFOC-20191137575

PATIENT
  Age: 59 Year
  Sex: Male

DRUGS (10)
  1. FIRDAPSE [Suspect]
     Active Substance: AMIFAMPRIDINE
     Indication: MYASTHENIC SYNDROME
     Dosage: 10 MG, QID
     Route: 048
     Dates: start: 20130701, end: 20130718
  2. SOLUPRED                           /00016201/ [Concomitant]
     Active Substance: PREDNISOLONE
     Indication: HODGKIN^S DISEASE
     Dosage: 40 MG, BID
     Route: 048
     Dates: start: 20130628, end: 20130718
  3. EUPANTOL [Concomitant]
     Active Substance: PANTOPRAZOLE SODIUM
     Indication: HYPERCHOLESTEROLAEMIA
     Dosage: 40 MG, QD
     Route: 048
     Dates: start: 20130627, end: 20130718
  4. AMLODIPINE [Concomitant]
     Active Substance: AMLODIPINE BESYLATE
     Indication: HYPERTENSION
     Dosage: 5 MG, QD
     Route: 048
     Dates: start: 20130627, end: 20130718
  5. KARDEGIC [Concomitant]
     Active Substance: ASPIRIN DL-LYSINE
     Indication: CORONARY ARTERY DISEASE
     Dosage: 75 MG, QD
     Route: 048
     Dates: start: 20130627, end: 20130718
  6. ZOPHREN                            /00955301/ [Concomitant]
     Active Substance: ONDANSETRON
     Indication: HODGKIN^S DISEASE
     Dosage: 8 MG, BID
     Route: 048
     Dates: start: 20130627, end: 20130718
  7. FIRDAPSE [Suspect]
     Active Substance: AMIFAMPRIDINE
     Dosage: 10 MG, TID
     Route: 048
     Dates: start: 20130625, end: 20130630
  8. PERFALGAN [Suspect]
     Active Substance: ACETAMINOPHEN
     Indication: MYASTHENIC SYNDROME
     Dosage: 1 G, TID
     Route: 065
     Dates: start: 20130627, end: 20130718
  9. LYRICA [Suspect]
     Active Substance: PREGABALIN
     Indication: MYASTHENIC SYNDROME
     Dosage: 25 MG, BID
     Route: 065
     Dates: start: 20130627, end: 20130718
  10. TRAMADOL HYDROCHLORIDE. [Suspect]
     Active Substance: TRAMADOL HYDROCHLORIDE
     Indication: MYASTHENIC SYNDROME
     Dosage: 50 MG, PRN
     Route: 065
     Dates: start: 20130627, end: 20130718

REACTIONS (1)
  - Cardio-respiratory arrest [Fatal]

NARRATIVE: CASE EVENT DATE: 20130705
